FAERS Safety Report 7672775-X (Version None)
Quarter: 2011Q3

REPORT INFORMATION
  Report Type: 
  Country: None (occurrence: None)
  Receive Date: 20110809
  Receipt Date: 20110804
  Transmission Date: 20111222
  Serious: No
  Sender: FDA-Public Use
  Company Number: US-TEVA-295233USA

PATIENT
  Sex: Male
  Weight: 31.326 kg

DRUGS (3)
  1. PROAIR HFA [Suspect]
     Indication: ASTHMA
     Route: 055
  2. ALBUTEROL [Concomitant]
     Indication: ASTHMA
     Route: 055
  3. PREDNISONE [Concomitant]
     Indication: ASTHMA

REACTIONS (1)
  - HEADACHE [None]
